FAERS Safety Report 4777251-X (Version None)
Quarter: 2005Q3

REPORT INFORMATION
  Report Type: 
  Country: None (occurrence: None)
  Receive Date: 20050922
  Receipt Date: 20050922
  Transmission Date: 20060218
  Serious: Yes (Hospitalization)
  Sender: FDA-Public Use
  Company Number: None

PATIENT
  Age: 72 Year
  Sex: Female
  Weight: 70 kg

DRUGS (11)
  1. ZYVOX [Suspect]
     Indication: DRUG HYPERSENSITIVITY
     Dosage: 600 MG   Q12H    IV BOLUS
     Route: 040
     Dates: start: 20050901, end: 20050919
  2. ZYVOX [Suspect]
     Indication: ENDOCARDITIS
     Dosage: 600 MG   Q12H    IV BOLUS
     Route: 040
     Dates: start: 20050901, end: 20050919
  3. DOXYCYCLINE [Concomitant]
  4. LANOXIN [Concomitant]
  5. PROTONIX [Concomitant]
  6. FOLIC ACID [Concomitant]
  7. AMBIEN [Concomitant]
  8. LORAZEPAM [Concomitant]
  9. LEVOTHYROXINE SODIUM [Concomitant]
  10. SOLU-CORTEF [Concomitant]
  11. POTASSIUM CHLORIDE [Concomitant]

REACTIONS (1)
  - PANCYTOPENIA [None]
